FAERS Safety Report 16135893 (Version 3)
Quarter: 2020Q3

REPORT INFORMATION
  Report Type: Spontaneous
  Country: US (occurrence: US)
  Receive Date: 20190329
  Receipt Date: 20200805
  Transmission Date: 20201102
  Serious: No
  Sender: FDA-Public Use
  Company Number: US-ASTRAZENECA-2019SE37070

PATIENT
  Sex: Female
  Weight: 91.6 kg

DRUGS (2)
  1. BYDUREON [Suspect]
     Active Substance: EXENATIDE
     Indication: BLOOD GLUCOSE INCREASED
     Route: 058
  2. BYDUREON BCISE [Suspect]
     Active Substance: EXENATIDE
     Indication: BLOOD GLUCOSE FLUCTUATION
     Route: 065

REACTIONS (8)
  - Weight increased [Unknown]
  - Injection site pain [Not Recovered/Not Resolved]
  - Mental impairment [Unknown]
  - Drug dose omission by device [Unknown]
  - Cardiac disorder [Unknown]
  - Weight decreased [Unknown]
  - Device issue [Unknown]
  - Injection site haemorrhage [Unknown]
